FAERS Safety Report 20748232 (Version 2)
Quarter: 2022Q3

REPORT INFORMATION
  Report Type: Spontaneous
  Country: US (occurrence: US)
  Receive Date: 20220426
  Receipt Date: 20220819
  Transmission Date: 20221027
  Serious: Yes (Hospitalization, Other)
  Sender: FDA-Public Use
  Company Number: US-DSJP-DSU-2022-114360AA

PATIENT
  Age: 55 Year
  Sex: Male

DRUGS (3)
  1. TURALIO [Suspect]
     Active Substance: PEXIDARTINIB HYDROCHLORIDE
     Indication: Giant cell tumour of tendon sheath
     Dosage: 200 MG, BID
     Route: 048
     Dates: start: 20200723, end: 20200827
  2. OMEPRAZOLE [Concomitant]
     Active Substance: OMEPRAZOLE
     Indication: Product used for unknown indication
     Dosage: 20 UNK
     Route: 048
  3. TACROLIMUS [Concomitant]
     Active Substance: TACROLIMUS
     Indication: Product used for unknown indication
     Dosage: 0.03 %
     Route: 061

REACTIONS (3)
  - Febrile neutropenia [Recovered/Resolved]
  - Hypersensitivity [Unknown]
  - Synovectomy [Unknown]

NARRATIVE: CASE EVENT DATE: 20200723
